FAERS Safety Report 10196891 (Version 1)
Quarter: 2014Q2

REPORT INFORMATION
  Report Type: Spontaneous
  Country: US (occurrence: US)
  Receive Date: 20140527
  Receipt Date: 20140527
  Transmission Date: 20141212
  Serious: No
  Sender: FDA-Public Use
  Company Number: US-TEVA-483953USA

PATIENT
  Sex: Female
  Weight: 49.94 kg

DRUGS (4)
  1. PARAGARD 380A [Suspect]
     Indication: CONTRACEPTION
     Route: 015
     Dates: start: 20140428, end: 20140507
  2. SINGULAIR [Concomitant]
     Indication: SEASONAL ALLERGY
  3. PRILOSEC [Concomitant]
     Indication: DYSPEPSIA
  4. PROBIOTICS [Concomitant]
     Indication: SUPPLEMENTATION THERAPY

REACTIONS (1)
  - Device expulsion [Recovered/Resolved]
